FAERS Safety Report 5272083-0 (Version None)
Quarter: 2007Q1

REPORT INFORMATION
  Report Type: 
  Country: None (occurrence: None)
  Receive Date: 20070322
  Receipt Date: 20070319
  Transmission Date: 20070707
  Serious: Yes (Hospitalization)
  Sender: FDA-Public Use
  Company Number: GBWYE402913NOV03

PATIENT
  Sex: Female
  Weight: 70 kg

DRUGS (7)
  1. RAPAMUNE [Suspect]
     Indication: IMMUNOSUPPRESSANT DRUG LEVEL
     Dosage: UNKNOWN
     Route: 048
     Dates: start: 20030416, end: 20030601
  2. RAPAMUNE [Suspect]
     Route: 048
     Dates: start: 20030602, end: 20030603
  3. FUROSEMIDE [Concomitant]
     Route: 048
     Dates: start: 20030408, end: 20030609
  4. ALFACALCIDOL [Concomitant]
     Route: 048
     Dates: start: 20030317
  5. PREDNISOLONE [Concomitant]
     Route: 048
     Dates: start: 20030317
  6. RANITIDINE [Concomitant]
     Route: 048
     Dates: start: 19950419
  7. AMLODIPINE [Concomitant]
     Route: 048
     Dates: start: 20030226

REACTIONS (4)
  - DECREASED APPETITE [None]
  - DIARRHOEA [None]
  - RENAL IMPAIRMENT [None]
  - VOMITING [None]
